FAERS Safety Report 9041816 (Version 1)
Quarter: 2013Q1

REPORT INFORMATION
  Report Type: Report from Study
  Country: US (occurrence: US)
  Receive Date: 20130129
  Receipt Date: 20130129
  Transmission Date: 20140127
  Serious: No
  Sender: FDA-Public Use
  Company Number: US-ABBOTT-12P-163-0904225-00

PATIENT
  Age: 70 Year
  Sex: Female

DRUGS (14)
  1. HUMIRA 40 MG/0.8 ML PEN [Suspect]
     Indication: PSORIASIS
     Dates: start: 20111208, end: 20120126
  2. HUMIRA 40 MG/0.8 ML PEN [Suspect]
     Dates: start: 20120208
  3. OMEPRAZOLE [Concomitant]
     Indication: GASTROOESOPHAGEAL REFLUX DISEASE
     Dosage: 40 MG DAILY
     Route: 048
  4. ENJUVIA [Concomitant]
     Indication: OESTROGEN REPLACEMENT THERAPY
     Dosage: 0.45 MG DAILY
     Route: 048
  5. LORATADINE [Concomitant]
     Indication: HYPERSENSITIVITY
     Dosage: 10 MG DAILY
     Route: 048
  6. LISINOPRIL [Concomitant]
     Indication: HYPERTENSION
     Dosage: 10 MG DAILY
     Route: 048
  7. GLIMEPIRIDE [Concomitant]
     Indication: DIABETES MELLITUS
     Dosage: 4 MG DAILY
     Route: 048
  8. METANX [Concomitant]
     Indication: VITAMIN B COMPLEX DEFICIENCY
     Dosage: 3/35/2 MG DAILY
     Route: 048
  9. ISOSORBIDE MONO [Concomitant]
     Indication: HYPERTENSION
     Dosage: 30 MG DAILY
     Route: 048
  10. SYNTHROID [Concomitant]
     Indication: HYPOTHYROIDISM
     Dosage: 0.15 MG DAILY
     Route: 048
  11. CRESTOR [Concomitant]
     Indication: BLOOD CHOLESTEROL INCREASED
  12. LOW DOSE ASPIRIN [Concomitant]
     Indication: PROPHYLAXIS
     Dosage: 81 MG DAILY
     Route: 048
  13. TUMS [Concomitant]
     Indication: MINERAL SUPPLEMENTATION
     Dosage: 1000 MG DAILY
     Route: 048
  14. VITAMIN D3 [Concomitant]
     Indication: VITAMIN D DEFICIENCY
     Dosage: 1000 MG DAILY

REACTIONS (4)
  - Influenza [Recovered/Resolved]
  - Pyrexia [Recovered/Resolved]
  - Chills [Recovered/Resolved]
  - Diarrhoea [Recovered/Resolved]
